FAERS Safety Report 9153622 (Version 1)
Quarter: 2013Q1

REPORT INFORMATION
  Report Type: Spontaneous
  Country: BR (occurrence: None)
  Receive Date: 20130204
  Receipt Date: 20130204
  Transmission Date: 20140127
  Serious: Yes (Hospitalization)
  Sender: FDA-Public Use
  Company Number: DSJ-2013-01569

PATIENT
  Age: 65 Year
  Sex: Male

DRUGS (4)
  1. BENICAR (OLMESARTAN MEDOXOMIL) (TABLET) (OLMESARTAN MEDOXOMIL) [Suspect]
     Indication: HYPERTENSION
     Route: 048
     Dates: start: 201206
  2. INSULIN (INSULIN) (INSULIN) [Concomitant]
  3. ATENOLOL (ATENOLOL) (ATENOLOL) [Concomitant]
  4. ALISKIREN (ALISKIREN) (ALISKIREN) [Concomitant]

REACTIONS (3)
  - Limb injury [None]
  - Localised infection [None]
  - Toe amputation [None]
